FAERS Safety Report 7104967-2 (Version None)
Quarter: 2010Q4

REPORT INFORMATION
  Report Type: 
  Country: None (occurrence: None)
  Receive Date: 20101116
  Receipt Date: 20101103
  Transmission Date: 20110411
  Serious: Yes (Other)
  Sender: FDA-Public Use
  Company Number: PHHY2010DE67732

PATIENT
  Age: 62 Year
  Sex: Female

DRUGS (2)
  1. EXFORGE [Suspect]
     Indication: HYPERTENSION
     Dosage: 160/10 MG
  2. AMLODIPINE [Suspect]
     Indication: HYPERTENSION

REACTIONS (3)
  - HYPERSENSITIVITY [None]
  - LUNG NEOPLASM [None]
  - RESPIRATORY DISORDER [None]
